FAERS Safety Report 15763463 (Version 2)
Quarter: 2019Q1

REPORT INFORMATION
  Report Type: Spontaneous
  Country: BR (occurrence: BR)
  Receive Date: 20181227
  Receipt Date: 20190123
  Transmission Date: 20190417
  Serious: Yes (Other)
  Sender: FDA-Public Use
  Company Number: BR-ROCHE-2235030

PATIENT
  Sex: Female
  Weight: 68 kg

DRUGS (10)
  1. CALCIUM CARBONATE. [Concomitant]
     Active Substance: CALCIUM CARBONATE
     Route: 065
  2. VITAMIN D3 [Concomitant]
     Active Substance: CHOLECALCIFEROL
     Route: 065
  3. MABTHERA [Suspect]
     Active Substance: RITUXIMAB
     Indication: RHEUMATOID ARTHRITIS
     Route: 042
     Dates: start: 201708
  4. ONDANSETRON [Concomitant]
     Active Substance: ONDANSETRON
     Route: 065
  5. OMEPRAZOLE. [Concomitant]
     Active Substance: OMEPRAZOLE
     Route: 065
  6. PARACETAMOL [Concomitant]
     Active Substance: ACETAMINOPHEN
     Route: 065
  7. NAPROXEN. [Concomitant]
     Active Substance: NAPROXEN
     Route: 065
  8. ACETYLSALICYLIC ACID [Concomitant]
     Active Substance: ASPIRIN
     Route: 065
  9. LEFLUNOMIDE. [Concomitant]
     Active Substance: LEFLUNOMIDE
     Route: 065
  10. PREDNISONE. [Concomitant]
     Active Substance: PREDNISONE
     Route: 065

REACTIONS (6)
  - Pharyngeal disorder [Recovered/Resolved]
  - Tooth disorder [Recovered/Resolved]
  - Urinary tract infection [Recovered/Resolved]
  - Dysgeusia [Recovered/Resolved]
  - Blood pressure increased [Recovered/Resolved]
  - Oxygen saturation decreased [Recovered/Resolved]
